FAERS Safety Report 6455694-6 (Version None)
Quarter: 2009Q4

REPORT INFORMATION
  Report Type: 
  Country: None (occurrence: None)
  Receive Date: 20091125
  Receipt Date: 20091103
  Transmission Date: 20100525
  Serious: No
  Sender: FDA-Public Use
  Company Number: US-ABBOTT-09P-163-0606740-00

PATIENT
  Sex: Male
  Weight: 83.99 kg

DRUGS (2)
  1. SIMCOR [Suspect]
     Indication: BLOOD CHOLESTEROL ABNORMAL
     Dates: start: 20091030
  2. ASPIRIN [Concomitant]
     Indication: PROPHYLAXIS

REACTIONS (3)
  - FLUSHING [None]
  - PARAESTHESIA [None]
  - SKIN TIGHTNESS [None]
